FAERS Safety Report 17310831 (Version 1)
Quarter: 2020Q1

REPORT INFORMATION
  Report Type: Spontaneous
  Country: US (occurrence: US)
  Receive Date: 20200123
  Receipt Date: 20200123
  Transmission Date: 20200409
  Serious: No
  Sender: FDA-Public Use
  Company Number: US-ROCHE-2300412

PATIENT
  Sex: Female

DRUGS (2)
  1. RITUXAN [Suspect]
     Active Substance: RITUXIMAB
     Indication: HASHIMOTO^S ENCEPHALOPATHY
     Dosage: ONGOING:YES
     Route: 042
     Dates: start: 201904
  2. RITUXAN [Suspect]
     Active Substance: RITUXIMAB
     Indication: ENCEPHALOMYELITIS

REACTIONS (3)
  - Off label use [Unknown]
  - Intentional product use issue [Unknown]
  - No adverse event [Unknown]
